FAERS Safety Report 19496100 (Version 1)
Quarter: 2021Q3

REPORT INFORMATION
  Report Type: Spontaneous
  Country: US (occurrence: US)
  Receive Date: 20210701
  Receipt Date: 20210701
  Transmission Date: 20211014
  Serious: Yes (Congenital Anomaly)
  Sender: FDA-Public Use
  Company Number: None

PATIENT
  Age: 30 Year
  Sex: Female

DRUGS (1)
  1. CLOMID [Suspect]
     Active Substance: CLOMIPHENE CITRATE
     Indication: INFERTILITY
     Dosage: ?          QUANTITY:1 TABLET(S);?
     Route: 048
     Dates: start: 19890701, end: 19890706

REACTIONS (6)
  - Maternal drugs affecting foetus [None]
  - Congenital anomaly [None]
  - Hernia [None]
  - Renal failure [None]
  - Hypertension [None]
  - Congenital ovarian anomaly [None]

NARRATIVE: CASE EVENT DATE: 19900305
